FAERS Safety Report 14533241 (Version 2)
Quarter: 2018Q1

REPORT INFORMATION
  Report Type: Report from Study
  Country: None (occurrence: FR)
  Receive Date: 20180215
  Receipt Date: 20180329
  Transmission Date: 20180509
  Serious: Yes (Other)
  Sender: FDA-Public Use
  Company Number: FR-ABBVIE-18K-056-2255483-00

PATIENT
  Age: 72 Year
  Sex: Female

DRUGS (2)
  1. DUODOPA [Suspect]
     Active Substance: CARBIDOPA\LEVODOPA
     Indication: PARKINSON^S DISEASE
     Dosage: 5.6 ML/H
     Route: 050
     Dates: start: 20180116, end: 2018
  2. DUODOPA [Suspect]
     Active Substance: CARBIDOPA\LEVODOPA
     Dosage: 3.3 ML/H
     Route: 050
     Dates: start: 20180116, end: 2018

REACTIONS (6)
  - Back pain [Unknown]
  - Stoma site erythema [Not Recovered/Not Resolved]
  - Arthralgia [Unknown]
  - Stoma site infection [Unknown]
  - Cognitive disorder [Unknown]
  - Stoma site inflammation [Not Recovered/Not Resolved]

NARRATIVE: CASE EVENT DATE: 2018
